FAERS Safety Report 24289284 (Version 3)
Quarter: 2024Q3

REPORT INFORMATION
  Report Type: Spontaneous
  Country: US (occurrence: US)
  Receive Date: 20240906
  Receipt Date: 20240913
  Transmission Date: 20241017
  Serious: Yes (Hospitalization, Other)
  Sender: AMGEN
  Company Number: US-AMGEN-USASP2024177342

PATIENT
  Age: 71 Year
  Sex: Female

DRUGS (1)
  1. REPATHA [Suspect]
     Active Substance: EVOLOCUMAB
     Indication: Type V hyperlipidaemia
     Dosage: 140 MILLIGRAM, Q2WK
     Route: 065
     Dates: start: 20221205

REACTIONS (10)
  - Hip fracture [Unknown]
  - Sternal fracture [Unknown]
  - Brain injury [Unknown]
  - Ankle fracture [Unknown]
  - Clavicle fracture [Unknown]
  - Skin injury [Unknown]
  - Scar [Unknown]
  - Road traffic accident [Unknown]
  - Device difficult to use [Unknown]
  - Drug dose omission by device [Unknown]

NARRATIVE: CASE EVENT DATE: 20240903
